FAERS Safety Report 9779713 (Version 2)
Quarter: 2014Q1

REPORT INFORMATION
  Report Type: Spontaneous
  Country: GB (occurrence: GB)
  Receive Date: 20131223
  Receipt Date: 20140122
  Transmission Date: 20141002
  Serious: Yes (Other)
  Sender: FDA-Public Use
  Company Number: GB-BRISTOL-MYERS SQUIBB COMPANY-19920800

PATIENT
  Age: 63 Year
  Sex: Male

DRUGS (3)
  1. BYETTA [Suspect]
     Indication: DIABETES MELLITUS
     Route: 058
  2. INSULIN GLARGINE [Interacting]
     Indication: DIABETES MELLITUS
  3. HUMALOG [Interacting]
     Indication: DIABETES MELLITUS

REACTIONS (3)
  - Hypoglycaemic seizure [Unknown]
  - Drug interaction [Unknown]
  - Off label use [Unknown]
